FAERS Safety Report 7154261-9 (Version None)
Quarter: 2010Q4

REPORT INFORMATION
  Report Type: 
  Country: None (occurrence: None)
  Receive Date: 20101213
  Receipt Date: 20101129
  Transmission Date: 20110411
  Serious: Yes (Other)
  Sender: FDA-Public Use
  Company Number: ES-PFIZER INC-2010168265

PATIENT
  Age: 85 Year
  Sex: Female

DRUGS (8)
  1. TRANGOREX [Suspect]
     Indication: ATRIAL FIBRILLATION
     Dosage: UNKNOWN DAILY DOSE
     Route: 048
     Dates: end: 20100101
  2. TRANGOREX [Suspect]
     Dosage: UNKNOWN DOSE THREE TIMES WEEKLY
     Dates: start: 20100901, end: 20101108
  3. BISOPROLOL [Concomitant]
     Dosage: UNK
  4. SEGURIL [Concomitant]
     Dosage: UNK
  5. SOMAZINA [Concomitant]
     Dosage: UNK
  6. LEXATIN [Concomitant]
     Dosage: UNK
  7. ATACAND [Concomitant]
     Dosage: UNK
  8. SINTROM [Concomitant]
     Dosage: UNK

REACTIONS (1)
  - ATRIAL FIBRILLATION [None]
